FAERS Safety Report 8956820 (Version 3)
Quarter: 2013Q2

REPORT INFORMATION
  Report Type: Spontaneous
  Country: JP (occurrence: JP)
  Receive Date: 20121211
  Receipt Date: 20130507
  Transmission Date: 20140414
  Serious: Yes (Death, Other)
  Sender: FDA-Public Use
  Company Number: PHHY2012JP113655

PATIENT
  Age: 72 Year
  Sex: Male

DRUGS (3)
  1. PACLITAXEL SANDOZ [Suspect]
     Indication: CHEMOTHERAPY
  2. CARBOPLATIN SANDOZ [Suspect]
     Indication: ADENOSQUAMOUS CELL LUNG CANCER
  3. PEMETREXED SODIUM HYDRATE [Suspect]
     Indication: CHEMOTHERAPY

REACTIONS (3)
  - Malignant neoplasm progression [Fatal]
  - Dementia [Unknown]
  - Hypersensitivity [Recovered/Resolved]
